FAERS Safety Report 17536456 (Version 1)
Quarter: 2020Q1

REPORT INFORMATION
  Report Type: Spontaneous
  Country: US (occurrence: US)
  Receive Date: 20200313
  Receipt Date: 20200313
  Transmission Date: 20200409
  Serious: No
  Sender: FDA-Public Use
  Company Number: US-ASTRAZENECA-2020SE31701

PATIENT
  Age: 800 Month
  Sex: Male
  Weight: 77.6 kg

DRUGS (1)
  1. BYDUREON [Suspect]
     Active Substance: EXENATIDE
     Indication: TYPE 2 DIABETES MELLITUS
     Dosage: 2.0MG UNKNOWN
     Route: 058

REACTIONS (4)
  - Incorrect dose administered by device [Unknown]
  - Intentional device misuse [Unknown]
  - Device malfunction [Unknown]
  - Weight decreased [Unknown]

NARRATIVE: CASE EVENT DATE: 201804
